FAERS Safety Report 9611559 (Version 2)
Quarter: 2013Q4

REPORT INFORMATION
  Report Type: Spontaneous
  Country: JP (occurrence: JP)
  Receive Date: 20131010
  Receipt Date: 20131010
  Transmission Date: 20140711
  Serious: No
  Sender: FDA-Public Use
  Company Number: PHHY2013JP099266

PATIENT
  Sex: Male

DRUGS (2)
  1. LAMISIL [Suspect]
     Indication: TINEA PEDIS
     Dosage: UNK UKN, UNK
     Route: 061
     Dates: end: 20130904
  2. RINDERON [Concomitant]
     Dosage: UNK UKN, UNK
     Route: 061

REACTIONS (2)
  - Skin irritation [Recovered/Resolved]
  - Wrong drug administered [Unknown]
